FAERS Safety Report 11599754 (Version 2)
Quarter: 2016Q1

REPORT INFORMATION
  Report Type: Report from Study
  Country: US (occurrence: US)
  Receive Date: 20151006
  Receipt Date: 20160104
  Transmission Date: 20160525
  Serious: No
  Sender: FDA-Public Use
  Company Number: PHEH2015US010095

PATIENT
  Age: 48 Year
  Sex: Male
  Weight: 98.42 kg

DRUGS (4)
  1. GILENYA [Suspect]
     Active Substance: FINGOLIMOD HYDROCHLORIDE
     Indication: MULTIPLE SCLEROSIS
     Dosage: 0.5 MG, QD
     Route: 048
     Dates: start: 20150430
  2. VENLAFAXINE [Concomitant]
     Active Substance: VENLAFAXINE HYDROCHLORIDE
     Indication: PRODUCT USED FOR UNKNOWN INDICATION
     Dosage: 37.5 MG, QD
     Route: 065
  3. SOLU-MEDROL [Concomitant]
     Active Substance: METHYLPREDNISOLONE SODIUM SUCCINATE
     Indication: PRODUCT USED FOR UNKNOWN INDICATION
     Route: 065
  4. TYLENOL PM [Concomitant]
     Active Substance: ACETAMINOPHEN\DIPHENHYDRAMINE
     Indication: PRODUCT USED FOR UNKNOWN INDICATION
     Route: 065

REACTIONS (26)
  - Scoliosis [Not Recovered/Not Resolved]
  - Sleep apnoea syndrome [Unknown]
  - Gait disturbance [Unknown]
  - Disturbance in attention [Unknown]
  - Nocturia [Unknown]
  - Sleep disorder [Not Recovered/Not Resolved]
  - Muscle spasms [Unknown]
  - Pain [Unknown]
  - Back pain [Not Recovered/Not Resolved]
  - Headache [Not Recovered/Not Resolved]
  - Memory impairment [Not Recovered/Not Resolved]
  - Paraesthesia [Unknown]
  - Stress [Unknown]
  - Gait spastic [Unknown]
  - Bladder disorder [Unknown]
  - Sensory loss [Unknown]
  - Muscular weakness [Unknown]
  - Irritability [Unknown]
  - Ataxia [Unknown]
  - Aphasia [Unknown]
  - General physical health deterioration [Unknown]
  - Anger [Unknown]
  - Depression [Unknown]
  - Fatigue [Unknown]
  - Muscle tightness [Unknown]
  - Anxiety [Unknown]

NARRATIVE: CASE EVENT DATE: 20150430
